FAERS Safety Report 9812764 (Version 2)
Quarter: 2014Q1

REPORT INFORMATION
  Report Type: Report from Study
  Country: CA (occurrence: CA)
  Receive Date: 20140113
  Receipt Date: 20140225
  Transmission Date: 20141002
  Serious: Yes (Other)
  Sender: FDA-Public Use
  Company Number: CA-JNJFOC-20140103415

PATIENT
  Sex: Female
  Weight: 60.4 kg

DRUGS (9)
  1. REMICADE [Suspect]
     Indication: CROHN^S DISEASE
     Route: 042
     Dates: start: 20030310
  2. METHOTREXATE [Concomitant]
     Route: 065
  3. DIDROCAL [Concomitant]
     Route: 065
  4. VITAMIN D [Concomitant]
     Route: 065
  5. CALCIUM [Concomitant]
     Route: 065
  6. QUESTRAN [Concomitant]
     Route: 065
  7. IRON [Concomitant]
     Route: 065
  8. FOLIC ACID [Concomitant]
     Route: 065
  9. TYLENOL 1 [Concomitant]
     Route: 065

REACTIONS (2)
  - Biopsy [Unknown]
  - Contraindication to vaccination [Unknown]
